FAERS Safety Report 8461769-2 (Version None)
Quarter: 2012Q2

REPORT INFORMATION
  Report Type: 
  Country: None (occurrence: None)
  Receive Date: 20120619
  Receipt Date: 20120619
  Transmission Date: 20120825
  Serious: Yes (Other)
  Sender: FDA-Public Use
  Company Number: None

PATIENT
  Age: 49 Year
  Sex: Female
  Weight: 81.6475 kg

DRUGS (2)
  1. MEDROXYPROGESTERONE ACETATE [Suspect]
     Indication: UTERINE HAEMORRHAGE
     Dosage: 10 MG 1 PER DAY PO
     Route: 048
     Dates: start: 20120521, end: 20120523
  2. MEDROXYPROGESTERONE ACETATE [Suspect]
     Indication: ENDOMETRIAL HYPERPLASIA
     Dosage: 10 MG 1 PER DAY PO
     Route: 048
     Dates: start: 20120521, end: 20120523

REACTIONS (8)
  - FEELING ABNORMAL [None]
  - MUSCLE SPASMS [None]
  - ARTHROPATHY [None]
  - MYALGIA [None]
  - OEDEMA PERIPHERAL [None]
  - THINKING ABNORMAL [None]
  - WEIGHT INCREASED [None]
  - FLUID OVERLOAD [None]
